FAERS Safety Report 23720161 (Version 2)
Quarter: 2024Q3

REPORT INFORMATION
  Report Type: Report from Study
  Country: IT (occurrence: IT)
  Receive Date: 20240408
  Receipt Date: 20240807
  Transmission Date: 20241017
  Serious: Yes (Death, Other)
  Sender: MYLAN
  Company Number: IT-CELGENE-ITA-20180801100

PATIENT
  Age: 57 Year
  Sex: Female

DRUGS (23)
  1. POMALIDOMIDE [Suspect]
     Active Substance: POMALIDOMIDE
     Indication: Plasma cell myeloma
     Dosage: 4 MILLIGRAM, Q21D (FREQUENCY TEXT: 21 DAYS)
     Route: 048
     Dates: start: 20170510, end: 20170530
  2. POMALIDOMIDE [Suspect]
     Active Substance: POMALIDOMIDE
     Dosage: 3 MILLIGRAM, Q21D
     Route: 048
     Dates: start: 20180124, end: 20180204
  3. DEXAMETHASONE [Suspect]
     Active Substance: DEXAMETHASONE
     Indication: Plasma cell myeloma
     Dosage: 20 MILLIGRAM (FREQUENCY TEXT: NOT PROVIDED)
     Route: 048
     Dates: start: 20170524
  4. DEXAMETHASONE [Suspect]
     Active Substance: DEXAMETHASONE
     Dosage: 20 MILLIGRAM (FREQUENCY TEXT: NOT PROVIDED)
     Route: 048
     Dates: start: 20170531
  5. DEXAMETHASONE [Suspect]
     Active Substance: DEXAMETHASONE
     Dosage: 20 MILLIGRAM, QW
     Route: 048
     Dates: start: 20170510
  6. DEXAMETHASONE [Suspect]
     Active Substance: DEXAMETHASONE
     Dosage: 20 MILLIGRAM (FREQUENCY TEXT: NOT PROVIDED)
     Route: 048
     Dates: start: 20170517
  7. DEXAMETHASONE [Suspect]
     Active Substance: DEXAMETHASONE
     Dosage: 20 MILLIGRAM
     Route: 048
     Dates: start: 20180131
  8. DEXAMETHASONE [Suspect]
     Active Substance: DEXAMETHASONE
     Dosage: 20 MILLIGRAM
     Route: 048
     Dates: start: 20180124
  9. RETACRIT [Concomitant]
     Active Substance: EPOETIN ALFA-EPBX
     Indication: Blood erythropoietin
     Dosage: FREQUENCY TEXT: NOT PROVIDED30000 UI/0.75 ML
     Route: 065
  10. ASPIRIN [Concomitant]
     Active Substance: ASPIRIN
     Indication: Thrombosis prophylaxis
     Dosage: 100 MILLIGRAM (FREQUENCY TEXT: NOT PROVIDED)
     Route: 065
  11. WHOLE BLOOD [Concomitant]
     Active Substance: WHOLE BLOOD
     Indication: Blood iron decreased
     Dosage: FREQUENCY TEXT: NOT PROVIDED
     Route: 065
     Dates: start: 20180426, end: 20180426
  12. WHOLE BLOOD [Concomitant]
     Active Substance: WHOLE BLOOD
     Dosage: FREQUENCY TEXT: NOT PROVIDED
     Route: 065
     Dates: start: 20180617, end: 20180617
  13. WHOLE BLOOD [Concomitant]
     Active Substance: WHOLE BLOOD
     Dosage: FREQUENCY TEXT: NOT PROVIDED
     Route: 065
     Dates: start: 20180710, end: 20180710
  14. WHOLE BLOOD [Concomitant]
     Active Substance: WHOLE BLOOD
     Dosage: FREQUENCY TEXT: NOT PROVIDED
     Route: 065
     Dates: start: 20180508, end: 20180508
  15. WHOLE BLOOD [Concomitant]
     Active Substance: WHOLE BLOOD
     Dosage: FREQUENCY TEXT: NOT PROVIDED
     Route: 065
     Dates: start: 20180417, end: 20180417
  16. WHOLE BLOOD [Concomitant]
     Active Substance: WHOLE BLOOD
     Dosage: FREQUENCY TEXT: NOT PROVIDED
     Route: 065
     Dates: start: 20180610, end: 20180610
  17. WHOLE BLOOD [Concomitant]
     Active Substance: WHOLE BLOOD
     Dosage: FREQUENCY TEXT: NOT PROVIDED
     Route: 065
     Dates: start: 20180530, end: 20180530
  18. WHOLE BLOOD [Concomitant]
     Active Substance: WHOLE BLOOD
     Dosage: FREQUENCY TEXT: NOT PROVIDED
     Route: 065
     Dates: start: 20180407, end: 20180407
  19. WHOLE BLOOD [Concomitant]
     Active Substance: WHOLE BLOOD
     Dosage: FREQUENCY TEXT: NOT PROVIDED
     Route: 065
     Dates: start: 20180702, end: 20180702
  20. WHOLE BLOOD [Concomitant]
     Active Substance: WHOLE BLOOD
     Dosage: FREQUENCY TEXT: NOT PROVIDED
     Route: 065
     Dates: start: 20180624, end: 20180624
  21. WHOLE BLOOD [Concomitant]
     Active Substance: WHOLE BLOOD
     Dosage: FREQUENCY TEXT: NOT PROVIDED
     Route: 065
     Dates: start: 20180518, end: 20180518
  22. RANITIDINE [Concomitant]
     Active Substance: RANITIDINE
     Indication: Gastritis prophylaxis
     Dosage: 300 MILLIGRAM (FREQUENCY TEXT: NOT PROVIDED)
     Route: 065
  23. VALACYCLOVIR HYDROCHLORIDE [Concomitant]
     Active Substance: VALACYCLOVIR HYDROCHLORIDE
     Indication: Antiviral prophylaxis
     Dosage: 500 MILLIGRAM (FREQUENCY TEXT: NOT PROVIDED)
     Route: 065

REACTIONS (2)
  - Cardiac failure [Fatal]
  - Neutropenia [Recovered/Resolved]

NARRATIVE: CASE EVENT DATE: 20180213
